FAERS Safety Report 7580717-0 (Version None)
Quarter: 2011Q2

REPORT INFORMATION
  Report Type: 
  Country: None (occurrence: None)
  Receive Date: 20110629
  Receipt Date: 20110614
  Transmission Date: 20111010
  Serious: No
  Sender: FDA-Public Use
  Company Number: US-B.I. PHARMACEUTICALS,INC./RIDGEFIELD-2011-BP-15397BP

PATIENT
  Age: 61 Year
  Sex: Male

DRUGS (2)
  1. PRADAXA [Suspect]
     Indication: ATRIAL FIBRILLATION
     Dosage: 300 MG
     Route: 048
     Dates: start: 20110501
  2. COREG [Concomitant]
     Indication: ATRIAL FIBRILLATION

REACTIONS (3)
  - JOINT SWELLING [None]
  - ERYTHEMA [None]
  - ARTHRALGIA [None]
